FAERS Safety Report 4653253-9 (Version None)
Quarter: 2005Q2

REPORT INFORMATION
  Report Type: 
  Country: None (occurrence: None)
  Receive Date: 20050503
  Receipt Date: 20050407
  Transmission Date: 20051028
  Serious: Yes (Death, Hospitalization)
  Sender: FDA-Public Use
  Company Number: F01200500559

PATIENT
  Age: 51 Year
  Sex: Male

DRUGS (4)
  1. OXALIPLATIN - SOLUTION - 130 MG/M2 [Suspect]
     Indication: COLORECTAL CANCER METASTATIC
     Dosage: 270 MG Q3W INTRAVENOUS NOS
     Route: 042
     Dates: start: 20050321, end: 20050321
  2. CAPECITABINE - TABLET - 1000 MG/M2 [Suspect]
     Dosage: 4000 MG (2 X 1000 MG/M2 PER DAY OF DAYS 1-15, Q3W) ORAL
     Route: 048
     Dates: start: 20050321, end: 20050405
  3. AMARYL [Concomitant]
  4. ACTOS [Concomitant]

REACTIONS (10)
  - BLOOD CALCIUM DECREASED [None]
  - BLOOD SODIUM DECREASED [None]
  - DEHYDRATION [None]
  - DIARRHOEA [None]
  - ESCHERICHIA SEPSIS [None]
  - HYPOTENSION [None]
  - MULTI-ORGAN FAILURE [None]
  - NEUTROPENIA [None]
  - PLATELET COUNT DECREASED [None]
  - WEIGHT DECREASED [None]
